FAERS Safety Report 22212715 (Version 5)
Quarter: 2023Q2

REPORT INFORMATION
  Report Type: Report from Study
  Country: NL (occurrence: NL)
  Receive Date: 20230414
  Receipt Date: 20230619
  Transmission Date: 20230722
  Serious: Yes (Other)
  Sender: FDA-Public Use
  Company Number: NL-ABBVIE-4719993

PATIENT
  Sex: Male

DRUGS (18)
  1. CARBIDOPA\LEVODOPA [Suspect]
     Active Substance: CARBIDOPA\LEVODOPA
     Indication: Parkinson^s disease
     Route: 050
     Dates: start: 20190910
  2. CARBIDOPA\LEVODOPA [Suspect]
     Active Substance: CARBIDOPA\LEVODOPA
     Dosage: MD: 7.5 ML; CD: 1.9 ML/H; ED: 1.0 ML
     Route: 050
  3. CARBIDOPA\LEVODOPA [Suspect]
     Active Substance: CARBIDOPA\LEVODOPA
     Route: 050
  4. CARBIDOPA\LEVODOPA [Suspect]
     Active Substance: CARBIDOPA\LEVODOPA
     Dosage: MD: 7.5 ML; CD: 1.9 ML/H; ED: 1.0 ML
     Route: 050
  5. CARBIDOPA\LEVODOPA [Suspect]
     Active Substance: CARBIDOPA\LEVODOPA
     Dosage: CD: 1.3 ML/H; CND: 1.0ML/H?DURATION TEXT: REMAINS AT 16 HOURS
     Route: 050
  6. CARBIDOPA\LEVODOPA [Suspect]
     Active Substance: CARBIDOPA\LEVODOPA
     Dosage: MD: 7.5 ML; CD: 2.1 ML/H; ED: 1.0 ML
     Route: 050
  7. CARBIDOPA\LEVODOPA [Suspect]
     Active Substance: CARBIDOPA\LEVODOPA
     Dosage: MD: 7.5 ML; CD: 2.1 ML/H; ED: 1.0 ML; CND: 1.3 ML/H
     Route: 050
  8. CARBIDOPA\LEVODOPA [Suspect]
     Active Substance: CARBIDOPA\LEVODOPA
     Dosage: END: 1.0 ML; CND: 1.5 ML/H?DURATION TEXT: REMAINS AT 24 HOURS
     Route: 050
  9. CARBIDOPA\LEVODOPA [Suspect]
     Active Substance: CARBIDOPA\LEVODOPA
     Route: 050
  10. SODIUM CITRATE\SODIUM LAURYL SULFOACETATE\SORBITOL [Concomitant]
     Active Substance: SODIUM CITRATE\SODIUM LAURYL SULFOACETATE\SORBITOL
     Indication: Bowel movement irregularity
  11. QUETIAPINE [Concomitant]
     Active Substance: QUETIAPINE
     Indication: Parkinson^s disease
     Dosage: FORM STRENGTH: 25 MG?FREQUENCY TEXT: 1X DAILY 2 UNITS ,1X DAILY 3 UNITS
  12. SINEMET [Concomitant]
     Active Substance: CARBIDOPA\LEVODOPA
     Indication: Parkinson^s disease
     Dosage: FORM STRENGTH: 125 MILLIGRAM
  13. LEVODOPA [Concomitant]
     Active Substance: LEVODOPA
     Indication: Parkinson^s disease
     Dosage: FORM STRENGTH: 62500 MICROGRAM
  14. LEVODOPA [Concomitant]
     Active Substance: LEVODOPA
     Indication: Parkinson^s disease
     Dosage: RETARD?FORM STRENGTH: 125 MILLIGRAM?AS REQUIRED AT NIGHT
  15. CLOZAPINE [Concomitant]
     Active Substance: CLOZAPINE
     Indication: Hallucination
  16. SINEMET CR [Concomitant]
     Active Substance: CARBIDOPA\LEVODOPA
     Indication: Product used for unknown indication
  17. ROPINIROLE [Concomitant]
     Active Substance: ROPINIROLE
     Indication: Parkinson^s disease
     Dosage: FORM STRENGTH: 2 MILLIGRAM
  18. POLYETHYLENE GLYCOLS [Concomitant]
     Active Substance: POLYETHYLENE GLYCOLS
     Indication: Bowel movement irregularity

REACTIONS (16)
  - Rehabilitation therapy [Recovered/Resolved]
  - Hallucination [Not Recovered/Not Resolved]
  - Neuropsychiatric symptoms [Recovering/Resolving]
  - Intentional device use issue [Unknown]
  - Motor dysfunction [Recovering/Resolving]
  - Confusional state [Not Recovered/Not Resolved]
  - Living in residential institution [Not Recovered/Not Resolved]
  - Speech disorder [Not Recovered/Not Resolved]
  - Restlessness [Not Recovered/Not Resolved]
  - Musculoskeletal stiffness [Unknown]
  - On and off phenomenon [Not Recovered/Not Resolved]
  - Cognitive disorder [Not Recovered/Not Resolved]
  - Freezing phenomenon [Not Recovered/Not Resolved]
  - Muscle rigidity [Not Recovered/Not Resolved]
  - Disturbance in attention [Not Recovered/Not Resolved]
  - Memory impairment [Not Recovered/Not Resolved]

NARRATIVE: CASE EVENT DATE: 20230101
